FAERS Safety Report 18319655 (Version 1)
Quarter: 2020Q3

REPORT INFORMATION
  Report Type: Report from Study
  Country: FR (occurrence: FR)
  Receive Date: 20200928
  Receipt Date: 20200928
  Transmission Date: 20201103
  Serious: Yes (Hospitalization, Other)
  Sender: FDA-Public Use
  Company Number: NVSC2020FR254025

PATIENT
  Age: 68 Year
  Sex: Female

DRUGS (23)
  1. PANTOPRAZOLE [Concomitant]
     Active Substance: PANTOPRAZOLE
     Indication: GASTRIC DISORDER
     Dosage: UNK
     Route: 065
     Dates: start: 201702, end: 201702
  2. LEVOTHYROX [Concomitant]
     Active Substance: LEVOTHYROXINE
     Indication: HYPOTHYROIDISM
     Dosage: UNK
     Route: 065
  3. XYLOCAINE [Concomitant]
     Active Substance: LIDOCAINE HYDROCHLORIDE
     Indication: PRODUCT USED FOR UNKNOWN INDICATION
     Dosage: UNK
     Route: 065
     Dates: start: 201702, end: 201702
  4. FERINJECT [Concomitant]
     Active Substance: FERRIC CARBOXYMALTOSE
     Indication: IRON DEFICIENCY
     Dosage: UNK
     Route: 065
     Dates: start: 201704, end: 201704
  5. PARACETAMOL [Concomitant]
     Active Substance: ACETAMINOPHEN
     Indication: OESOPHAGITIS
     Dosage: UNK
     Route: 065
     Dates: start: 201708, end: 2017
  6. TEMESTA [Concomitant]
     Indication: DEPRESSION
     Dosage: UNK
     Route: 065
     Dates: start: 201809, end: 2020
  7. EFFEXOR [Concomitant]
     Active Substance: VENLAFAXINE HYDROCHLORIDE
     Indication: DEPRESSION
     Dosage: UNK
     Route: 065
     Dates: start: 2018
  8. ZOPICLONE [Concomitant]
     Active Substance: ZOPICLONE
     Indication: INSOMNIA
     Dosage: UNK
     Route: 065
     Dates: start: 2018
  9. EVEROLIMUS. [Suspect]
     Active Substance: EVEROLIMUS
     Indication: RENAL CELL CARCINOMA
     Dosage: 10 MG, QD
     Route: 065
     Dates: start: 201607
  10. THYROZOL [Concomitant]
     Active Substance: METHIMAZOLE
     Indication: HYPERTHYROIDISM
     Dosage: UNK
     Route: 065
     Dates: start: 201705
  11. LORAZEPAM. [Concomitant]
     Active Substance: LORAZEPAM
     Indication: DEPRESSION
     Dosage: UNK
     Route: 065
     Dates: start: 201809
  12. FOLIC ACID. [Concomitant]
     Active Substance: FOLIC ACID
     Dosage: UNK
     Route: 065
     Dates: start: 2019
  13. PANTOPRAZOLE [Concomitant]
     Active Substance: PANTOPRAZOLE
     Dosage: UNK
     Route: 065
     Dates: start: 2018
  14. FENOFIBRATE. [Concomitant]
     Active Substance: FENOFIBRATE
     Indication: DYSLIPIDAEMIA
     Dosage: UNK
     Route: 065
     Dates: start: 201702
  15. ENOXAPARIN [Concomitant]
     Active Substance: ENOXAPARIN
     Indication: PHLEBITIS
     Dosage: UNK
     Route: 065
     Dates: start: 201806, end: 201807
  16. SPASFON [Concomitant]
     Indication: ABDOMINAL PAIN
     Dosage: UNK
     Route: 065
  17. FOLIC ACID. [Concomitant]
     Active Substance: FOLIC ACID
     Indication: FOLATE DEFICIENCY
     Dosage: UNK
     Route: 065
     Dates: start: 201811, end: 201811
  18. FORLAX [Concomitant]
     Active Substance: POLYETHYLENE GLYCOL 4000
     Indication: CONSTIPATION
     Dosage: UNK
     Route: 065
     Dates: start: 2020, end: 2020
  19. NEORECORMON [Concomitant]
     Active Substance: ERYTHROPOIETIN
     Indication: ANAEMIA
     Dosage: UNK
     Route: 065
     Dates: start: 201612, end: 2017
  20. ULCAR [Concomitant]
     Indication: OESOPHAGITIS
     Dosage: UNK
     Route: 065
     Dates: start: 201708, end: 2017
  21. INIPOMP [Concomitant]
     Active Substance: PANTOPRAZOLE SODIUM
     Indication: GASTROOESOPHAGEAL REFLUX DISEASE
     Dosage: UNK
     Route: 065
  22. PARACETAMOL [Concomitant]
     Active Substance: ACETAMINOPHEN
     Dosage: UNK
     Route: 065
     Dates: start: 201806, end: 2018
  23. NEURONTIN [Concomitant]
     Active Substance: GABAPENTIN
     Indication: NEURALGIA
     Dosage: UNK
     Route: 065
     Dates: start: 2020

REACTIONS (17)
  - Red blood cell sedimentation rate abnormal [Recovered/Resolved]
  - Pleural effusion [Unknown]
  - Dry eye [Unknown]
  - Inflammation [Recovered/Resolved]
  - Gastric disorder [Recovered/Resolved]
  - C-reactive protein increased [Recovered/Resolved]
  - Weight decreased [Recovered/Resolved]
  - Nausea [Unknown]
  - Vomiting [Unknown]
  - Thrombocytosis [Recovered/Resolved]
  - Diarrhoea [Recovered/Resolved]
  - Back pain [Unknown]
  - Osteoarthritis [Unknown]
  - Dry mouth [Unknown]
  - Cancer pain [Unknown]
  - Metastasis [Unknown]
  - Mucosal inflammation [Unknown]

NARRATIVE: CASE EVENT DATE: 20170130
